FAERS Safety Report 7994215-3 (Version None)
Quarter: 2011Q4

REPORT INFORMATION
  Report Type: 
  Country: None (occurrence: None)
  Receive Date: 20111220
  Receipt Date: 20111212
  Transmission Date: 20120403
  Serious: Yes (Other)
  Sender: FDA-Public Use
  Company Number: US-BRISTOL-MYERS SQUIBB COMPANY-16284960

PATIENT
  Age: 76 Year
  Sex: Male

DRUGS (3)
  1. FUROSEMIDE [Suspect]
  2. POTASSIUM CHLORIDE [Suspect]
  3. CAPTOPRIL [Suspect]
     Indication: HYPERTENSION
     Dosage: DOSE REDUCED TO 12.5MG/DAY BID

REACTIONS (1)
  - PSYCHOTIC DISORDER [None]
